FAERS Safety Report 9300997 (Version 1)
Quarter: 2013Q2

REPORT INFORMATION
  Report Type: Spontaneous
  Country: US (occurrence: US)
  Receive Date: 20130521
  Receipt Date: 20130521
  Transmission Date: 20140414
  Serious: No
  Sender: FDA-Public Use
  Company Number: US-PFIZER INC-2013151300

PATIENT
  Age: 7 Year
  Sex: Female
  Weight: 22.7 kg

DRUGS (2)
  1. GENOTROPIN [Suspect]
     Indication: GROWTH HORMONE DEFICIENCY
     Dosage: UNK, 1X/DAY
     Dates: start: 201007, end: 201210
  2. GENOTROPIN [Suspect]
     Dosage: UNK, 1X/DAY

REACTIONS (6)
  - Blood growth hormone increased [Recovered/Resolved]
  - Abnormal behaviour [Recovered/Resolved]
  - Abdominal pain upper [Recovered/Resolved]
  - Lethargy [Recovered/Resolved]
  - Pollakiuria [Recovered/Resolved]
  - Apathy [Recovered/Resolved]
